FAERS Safety Report 21399017 (Version 1)
Quarter: 2022Q4

REPORT INFORMATION
  Report Type: Spontaneous
  Country: CN (occurrence: CN)
  Receive Date: 20221001
  Receipt Date: 20221001
  Transmission Date: 20230113
  Serious: Yes (Other)
  Sender: FDA-Public Use
  Company Number: CN-MSNLABS-2022MSNLIT01168

PATIENT

DRUGS (8)
  1. PACLITAXEL [Suspect]
     Active Substance: PACLITAXEL
     Indication: Metastases to liver
     Route: 042
  2. ETOPOSIDE [Suspect]
     Active Substance: ETOPOSIDE
     Indication: Abdominal neoplasm
     Route: 042
  3. ETOPOSIDE [Suspect]
     Active Substance: ETOPOSIDE
     Indication: Metastases to liver
  4. CISPLATIN [Suspect]
     Active Substance: CISPLATIN
     Indication: Abdominal neoplasm
     Dosage: OVER 30 MINUTES
     Route: 042
  5. CISPLATIN [Suspect]
     Active Substance: CISPLATIN
     Indication: Metastases to liver
     Route: 042
  6. IFOSFAMIDE [Suspect]
     Active Substance: IFOSFAMIDE
     Indication: Metastases to liver
     Dosage: OVER 60 MINUTES
     Route: 042
  7. BEVACIZUMAB [Suspect]
     Active Substance: BEVACIZUMAB
     Indication: Metastases to liver
     Route: 042
  8. BLEOMYCIN A6 [Suspect]
     Active Substance: BLEOMYCIN A6
     Indication: Metastases to liver
     Dosage: 5-6  MG/M2
     Route: 030

REACTIONS (2)
  - Drug ineffective [Unknown]
  - Myelosuppression [Unknown]
